FAERS Safety Report 4667587-5 (Version None)
Quarter: 2005Q2

REPORT INFORMATION
  Report Type: 
  Country: None (occurrence: None)
  Receive Date: 20050502
  Receipt Date: 20050325
  Transmission Date: 20051028
  Serious: No
  Sender: FDA-Public Use
  Company Number: 1573

PATIENT
  Age: 50 Year
  Sex: Male
  Weight: 182 kg

DRUGS (2)
  1. ONTAK [Suspect]
     Indication: HUMAN T-CELL LYMPHOTROPIC VIRUS TYPE I INFECTION
     Dosage: 18 UG/KG/D QD IV
     Route: 042
     Dates: start: 20040101
  2. ONTAK [Suspect]
     Indication: MYCOSIS FUNGOIDES
     Dosage: 18 UG/KG/D QD IV
     Route: 042
     Dates: start: 20040101

REACTIONS (4)
  - ASTHENIA [None]
  - FACE OEDEMA [None]
  - OEDEMA PERIPHERAL [None]
  - WEIGHT INCREASED [None]
